FAERS Safety Report 8876623 (Version 2)
Quarter: 2014Q1

REPORT INFORMATION
  Report Type: Spontaneous
  Country: GB (occurrence: GB)
  Receive Date: 20121029
  Receipt Date: 20140313
  Transmission Date: 20141002
  Serious: Yes (Other)
  Sender: FDA-Public Use
  Company Number: PHHY2012BE095232

PATIENT
  Age: 28 Year
  Sex: Female

DRUGS (7)
  1. SUFENTANIL [Suspect]
     Indication: EPIDURAL ANAESTHESIA
     Dosage: 2.5 UG, UNK
     Route: 037
  2. SUFENTANIL [Suspect]
     Indication: SPINAL ANAESTHESIA
     Dosage: 2.5 UG/ML, UNK
     Route: 037
  3. BUPIVACAINE [Suspect]
     Indication: EPIDURAL ANAESTHESIA
     Dosage: 7.5 MG, UNK
     Route: 037
  4. BUPIVACAINE [Suspect]
     Indication: SPINAL ANAESTHESIA
  5. ENOXAPARIN SODIUM [Suspect]
     Indication: PROPHYLAXIS
     Dosage: 40 MG, UNK
  6. LEVOBUPIVACAINE [Concomitant]
     Indication: EPIDURAL ANALGESIA
  7. NIMODIPINE [Concomitant]
     Indication: VASOSPASM
     Route: 042

REACTIONS (10)
  - Spinal haematoma [Unknown]
  - Sensory disturbance [Recovering/Resolving]
  - Neuralgia [Unknown]
  - Sensory loss [Unknown]
  - Motor dysfunction [Not Recovered/Not Resolved]
  - Areflexia [Unknown]
  - Cauda equina syndrome [Unknown]
  - Back pain [Unknown]
  - Muscular weakness [Unknown]
  - Maternal exposure during delivery [Unknown]
